FAERS Safety Report 22950944 (Version 2)
Quarter: 2024Q3

REPORT INFORMATION
  Report Type: Spontaneous
  Country: JP (occurrence: JP)
  Receive Date: 20230916
  Receipt Date: 20240910
  Transmission Date: 20241017
  Serious: Yes (Life-Threatening, Hospitalization, Other)
  Sender: ACCORD
  Company Number: JP-MLMSERVICE-2023082945144931

PATIENT
  Age: 65 Year
  Sex: Male

DRUGS (6)
  1. DOCETAXEL [Suspect]
     Active Substance: DOCETAXEL\DOCETAXEL ANHYDROUS
     Indication: Metastases to lymph nodes
     Dosage: 50 MG/M2 ON DAY1
  2. OXALIPLATIN [Suspect]
     Active Substance: OXALIPLATIN
     Indication: Gastric cancer stage III
     Dosage: 100 MG/M2 ON DAY1
  3. GIMERACIL\OTERACIL\TEGAFUR [Suspect]
     Active Substance: GIMERACIL\OTERACIL POTASSIUM\TEGAFUR
     Indication: Gastric cancer stage III
     Dosage: (80 MG/M2/DAY ON DAY1-14) FOR 2 WEEKS
  4. OXALIPLATIN [Suspect]
     Active Substance: OXALIPLATIN
     Indication: Metastases to lymph nodes
     Dosage: 100 MG/M2 ON DAY1
  5. GIMERACIL\OTERACIL\TEGAFUR [Suspect]
     Active Substance: GIMERACIL\OTERACIL POTASSIUM\TEGAFUR
     Indication: Metastases to lymph nodes
     Dosage: (80 MG/M2/DAY ON DAY1-14) FOR 2 WEEKS
  6. DOCETAXEL [Suspect]
     Active Substance: DOCETAXEL\DOCETAXEL ANHYDROUS
     Indication: Gastric cancer stage III
     Dosage: 50 MG/M2 ON DAY1

REACTIONS (8)
  - Amoebic colitis [Recovering/Resolving]
  - Electrolyte imbalance [Recovering/Resolving]
  - Hepatic amoebiasis [Recovering/Resolving]
  - Renal failure [Recovering/Resolving]
  - Ascites [Recovering/Resolving]
  - Large intestine perforation [Recovering/Resolving]
  - Rectal perforation [Recovering/Resolving]
  - Septic shock [Recovering/Resolving]
